FAERS Safety Report 9013192 (Version 1)
Quarter: 2013Q1

REPORT INFORMATION
  Report Type: Spontaneous
  Country: US (occurrence: US)
  Receive Date: 20130115
  Receipt Date: 20130115
  Transmission Date: 20140127
  Serious: No
  Sender: FDA-Public Use
  Company Number: US-BIOGENIDEC-2013BI003188

PATIENT
  Sex: Female

DRUGS (1)
  1. TYSABRI [Suspect]
     Indication: MULTIPLE SCLEROSIS
     Route: 042
     Dates: start: 20070122

REACTIONS (5)
  - General symptom [Unknown]
  - Memory impairment [Unknown]
  - Ear infection [Unknown]
  - Herpes zoster [Unknown]
  - Hypotension [Unknown]
